FAERS Safety Report 21068649 (Version 1)
Quarter: 2022Q3

REPORT INFORMATION
  Report Type: Spontaneous
  Country: JP (occurrence: JP)
  Receive Date: 20220712
  Receipt Date: 20220712
  Transmission Date: 20221027
  Serious: No
  Sender: FDA-Public Use
  Company Number: JP-GSKNCCC-Case-01530222_AE-59976

PATIENT

DRUGS (1)
  1. SOTROVIMAB [Suspect]
     Active Substance: SOTROVIMAB
     Indication: Coronavirus test positive
     Dosage: UNK
     Route: 041

REACTIONS (2)
  - Drug delivery system removal [Unknown]
  - Underdose [Unknown]
